FAERS Safety Report 16969852 (Version 1)
Quarter: 2019Q4

REPORT INFORMATION
  Report Type: Spontaneous
  Country: SG (occurrence: SG)
  Receive Date: 20191029
  Receipt Date: 20191029
  Transmission Date: 20200122
  Serious: Yes (Hospitalization)
  Sender: FDA-Public Use
  Company Number: SG-TEVA-2019-SG-1128752

PATIENT
  Age: 59 Year
  Sex: Male

DRUGS (1)
  1. PREDNISOLONE. [Suspect]
     Active Substance: PREDNISOLONE
     Indication: GLOMERULONEPHRITIS
     Dosage: 60 MILLIGRAM DAILY;
     Route: 065

REACTIONS (6)
  - Pneumonitis [Recovering/Resolving]
  - Nocardiosis [Recovering/Resolving]
  - Subcutaneous abscess [Recovered/Resolved]
  - Muscle abscess [Recovered/Resolved]
  - Lung abscess [Recovering/Resolving]
  - Brain abscess [Recovering/Resolving]
